FAERS Safety Report 5110125-3 (Version None)
Quarter: 2006Q3

REPORT INFORMATION
  Report Type: 
  Country: None (occurrence: None)
  Receive Date: 20060918
  Receipt Date: 20060901
  Transmission Date: 20061208
  Serious: Yes (Death)
  Sender: FDA-Public Use
  Company Number: S06-DEN-02855-01

PATIENT
  Age: 54 Year
  Sex: Female
  Weight: 113 kg

DRUGS (3)
  1. CIPRALEX (ESCITALOPRAM) [Suspect]
     Indication: DEPRESSION
     Dosage: 15 MG QD PO
     Route: 048
     Dates: start: 20051129
  2. ORLISTAT [Suspect]
     Indication: OVERWEIGHT
     Dosage: 140 MG QD PO
     Route: 048
     Dates: start: 20050412
  3. IBUPROFEN [Concomitant]

REACTIONS (1)
  - SUDDEN DEATH [None]
